FAERS Safety Report 10007361 (Version 1)
Quarter: 2014Q1

REPORT INFORMATION
  Report Type: Spontaneous
  Country: US (occurrence: US)
  Receive Date: 20140313
  Receipt Date: 20140313
  Transmission Date: 20141002
  Serious: Yes (Other)
  Sender: FDA-Public Use
  Company Number: US-GLAXOSMITHKLINE-A1064738A

PATIENT
  Age: 49 Year
  Sex: Female

DRUGS (1)
  1. COREG CR [Suspect]
     Indication: PRODUCT USED FOR UNKNOWN INDICATION
     Dosage: 20MG UNKNOWN

REACTIONS (7)
  - Cardiac failure congestive [Unknown]
  - Diabetes mellitus [Unknown]
  - Rheumatoid arthritis [Unknown]
  - Hypertension [Unknown]
  - Anaemia [Unknown]
  - Osteoarthritis [Unknown]
  - Coronary artery disease [Unknown]
